FAERS Safety Report 6185499-5 (Version None)
Quarter: 2009Q2

REPORT INFORMATION
  Report Type: 
  Country: None (occurrence: None)
  Receive Date: 20090511
  Receipt Date: 20090506
  Transmission Date: 20091009
  Serious: Yes (Death)
  Sender: FDA-Public Use
  Company Number: PHHY2009NZ16500

PATIENT
  Sex: Male

DRUGS (6)
  1. CLOZARIL [Suspect]
     Indication: SCHIZOPHRENIA
     Dosage: 250 MG, QHS
     Dates: start: 19990914
  2. INHALERS [Concomitant]
  3. VALPROATE SODIUM [Concomitant]
  4. PAROXETINE [Concomitant]
  5. TERAZOSIN HCL [Concomitant]
  6. RANITIDINE [Concomitant]

REACTIONS (2)
  - ASTHMA [None]
  - CARDIAC FAILURE [None]
